FAERS Safety Report 5735276-1 (Version None)
Quarter: 2008Q2

REPORT INFORMATION
  Report Type: 
  Country: None (occurrence: None)
  Receive Date: 20080508
  Receipt Date: 20080508
  Transmission Date: 20081010
  Serious: Yes (Other)
  Sender: FDA-Public Use
  Company Number: None

PATIENT
  Age: 52 Year
  Sex: Female
  Weight: 58.0604 kg

DRUGS (1)
  1. CREST PRO HEALTH MOUTHWASH PROCTOR AND GAMBLE [Suspect]
     Indication: DENTAL DISORDER PROPHYLAXIS
     Dosage: 4 TSP 2X A DAY  EVERY DAY
     Dates: start: 20070101, end: 20080507

REACTIONS (1)
  - TOOTH DISCOLOURATION [None]
